FAERS Safety Report 17669570 (Version 2)
Quarter: 2020Q2

REPORT INFORMATION
  Report Type: Spontaneous
  Country: PL (occurrence: PL)
  Receive Date: 20200415
  Receipt Date: 20200522
  Transmission Date: 20200713
  Serious: Yes (Hospitalization, Other)
  Sender: FDA-Public Use
  Company Number: PL-SUN PHARMACEUTICAL INDUSTRIES LTD-2020RR-243982

PATIENT
  Age: 79 Year
  Sex: Male

DRUGS (14)
  1. TORASEMIDE [Suspect]
     Active Substance: TORSEMIDE
     Indication: CARDIAC FAILURE
     Dosage: DOSE: 1 X 5 MG
     Route: 065
  2. NEBIVOLOL. [Suspect]
     Active Substance: NEBIVOLOL
     Indication: CARDIAC FAILURE
     Dosage: DOSE: 1 X 5 MG
     Route: 065
  3. IVABRADINE [Concomitant]
     Active Substance: IVABRADINE
     Indication: PRODUCT USED FOR UNKNOWN INDICATION
     Dosage: 7.5 MG
     Route: 065
  4. IVABRADINE [Concomitant]
     Active Substance: IVABRADINE
     Dosage: 5 MG, UNK
     Route: 065
  5. ATORVASTATIN [Suspect]
     Active Substance: ATORVASTATIN
     Indication: CARDIAC FAILURE
     Dosage: DOSE:  1 X 20 MG
     Route: 065
  6. IVABRADINE [Concomitant]
     Active Substance: IVABRADINE
  7. NEBIVOLOL. [Suspect]
     Active Substance: NEBIVOLOL
     Indication: CARDIAC FAILURE
     Dosage: 5 MILLIGRAM
     Route: 065
  8. ACETYLSALICYLIC ACID [Suspect]
     Active Substance: ASPIRIN
     Indication: CARDIAC FAILURE
     Dosage: DOSE: 1 X 75 MG
     Route: 065
  9. ACETYLSALICYLIC ACID [Suspect]
     Active Substance: ASPIRIN
     Indication: CARDIAC FAILURE
     Dosage: DOSE: 1 X 75 MG
     Route: 065
  10. PERINDOPRIL [Suspect]
     Active Substance: PERINDOPRIL
     Indication: CARDIAC FAILURE
     Dosage: DOSE: 1 X 5 MG
     Route: 065
  11. EPLERENONE. [Suspect]
     Active Substance: EPLERENONE
     Indication: CARDIAC FAILURE
     Dosage: DOSE: 1 X 50 MG
     Route: 065
  12. TORASEMIDE [Suspect]
     Active Substance: TORSEMIDE
     Indication: CARDIAC FAILURE
     Dosage: DOSE: 1 X 5 MG
     Route: 065
  13. EPLERENONE. [Suspect]
     Active Substance: EPLERENONE
     Dosage: DOSE: 1 X 50 MG
     Route: 065
  14. PERINDOPRIL [Suspect]
     Active Substance: PERINDOPRIL
     Indication: CARDIAC FAILURE
     Dosage: DOSE: 1 X 5 MG
     Route: 065

REACTIONS (10)
  - Chronic obstructive pulmonary disease [Unknown]
  - Acute myocardial infarction [Unknown]
  - Therapeutic product effect incomplete [Recovering/Resolving]
  - Cardiac failure chronic [Recovered/Resolved]
  - Hypotonia [Recovered/Resolved]
  - Respiratory failure [Unknown]
  - Hypotension [Unknown]
  - Cardiac failure [Unknown]
  - Dyspnoea [Unknown]
  - Oedema peripheral [Unknown]

NARRATIVE: CASE EVENT DATE: 2016
